FAERS Safety Report 20115353 (Version 1)
Quarter: 2021Q4

REPORT INFORMATION
  Report Type: Report from Study
  Country: DE (occurrence: DE)
  Receive Date: 20211125
  Receipt Date: 20211125
  Transmission Date: 20220303
  Serious: Yes (Other)
  Sender: FDA-Public Use
  Company Number: DE-ABBVIE-21K-062-4176249-00

PATIENT
  Age: 70 Year
  Sex: Male
  Weight: 125 kg

DRUGS (5)
  1. SKYRIZI [Suspect]
     Active Substance: RISANKIZUMAB-RZAA
     Indication: Psoriasis
     Route: 058
     Dates: start: 20200326, end: 20210624
  2. COSENTYX [Suspect]
     Active Substance: SECUKINUMAB
     Indication: Psoriasis
     Route: 065
     Dates: start: 20150717, end: 20170206
  3. STELARA [Suspect]
     Active Substance: USTEKINUMAB
     Indication: Psoriasis
     Route: 065
     Dates: start: 20170206, end: 20170706
  4. HUMIRA [Suspect]
     Active Substance: ADALIMUMAB
     Indication: Psoriasis
     Route: 058
     Dates: start: 20170803, end: 20180108
  5. TALTZ [Suspect]
     Active Substance: IXEKIZUMAB
     Indication: Psoriasis
     Route: 065
     Dates: start: 20180108, end: 20180828

REACTIONS (4)
  - Prostate cancer [Not Recovered/Not Resolved]
  - Urinary retention postoperative [Unknown]
  - Prostatic specific antigen increased [Unknown]
  - Seminal vesicular disorder [Unknown]

NARRATIVE: CASE EVENT DATE: 20210401
